FAERS Safety Report 12621841 (Version 1)
Quarter: 2016Q3

REPORT INFORMATION
  Report Type: Spontaneous
  Country: US (occurrence: US)
  Receive Date: 20160804
  Receipt Date: 20160804
  Transmission Date: 20161109
  Serious: No
  Sender: FDA-Public Use
  Company Number: US-009507513-1607USA011097

PATIENT

DRUGS (2)
  1. BRIDION [Suspect]
     Active Substance: SUGAMMADEX
     Dosage: UNK
  2. HEPARIN SODIUM. [Suspect]
     Active Substance: HEPARIN SODIUM
     Dosage: STRENGTH REPORTED AS 10,000 UNIT/ 2ML, UNK

REACTIONS (2)
  - Circumstance or information capable of leading to medication error [Unknown]
  - Product packaging confusion [Unknown]
